FAERS Safety Report 23297876 (Version 1)
Quarter: 2023Q4

REPORT INFORMATION
  Report Type: Spontaneous
  Country: GB (occurrence: GB)
  Receive Date: 20231214
  Receipt Date: 20231214
  Transmission Date: 20240109
  Serious: Yes (Other)
  Sender: FDA-Public Use
  Company Number: GB-SA-SAC20231212000745

PATIENT

DRUGS (2)
  1. ENOXAPARIN SODIUM [Suspect]
     Active Substance: ENOXAPARIN SODIUM
     Indication: Renal impairment
     Dosage: UNK
     Route: 065
  2. DALTEPARIN [Suspect]
     Active Substance: DALTEPARIN
     Dosage: UNK

REACTIONS (3)
  - Hypotension [Unknown]
  - Syncope [Unknown]
  - Encephalomalacia [Unknown]
